FAERS Safety Report 6304526-5 (Version None)
Quarter: 2009Q3

REPORT INFORMATION
  Report Type: 
  Country: None (occurrence: None)
  Receive Date: 20090806
  Receipt Date: 20090729
  Transmission Date: 20100115
  Serious: Yes (Hospitalization)
  Sender: FDA-Public Use
  Company Number: WAES 0907USA05466

PATIENT
  Age: 11 Year
  Sex: Male

DRUGS (2)
  1. DECADRON [Suspect]
     Dosage: PO
     Route: 048
  2. ENZASTAURIN HYDROCHLORIDE UNK [Suspect]

REACTIONS (1)
  - LYMPHOPENIA [None]
